FAERS Safety Report 7849313-1 (Version None)
Quarter: 2011Q4

REPORT INFORMATION
  Report Type: 
  Country: None (occurrence: None)
  Receive Date: 20111021
  Receipt Date: 20111005
  Transmission Date: 20120403
  Serious: Yes (Other)
  Sender: FDA-Public Use
  Company Number: CRC-11-246

PATIENT
  Sex: Female
  Weight: 92.0802 kg

DRUGS (4)
  1. METHYLDOPA [Concomitant]
  2. TOPIRAMATE [Suspect]
     Indication: CONVULSION
     Dosage: 2 TABS AT BEDTIME; ORAL
     Route: 048
  3. TOPIRAMATE [Suspect]
     Indication: MIGRAINE
     Dosage: 2 TABS AT BEDTIME; ORAL
     Route: 048
  4. LOPRESSOR [Concomitant]

REACTIONS (5)
  - VISUAL IMPAIRMENT [None]
  - PREGNANCY [None]
  - MATERNAL EXPOSURE DURING PREGNANCY [None]
  - MEMORY IMPAIRMENT [None]
  - ABORTION SPONTANEOUS [None]
